FAERS Safety Report 8737670 (Version 2)
Quarter: 2013Q4

REPORT INFORMATION
  Report Type: Spontaneous
  Country: US (occurrence: US)
  Receive Date: 20120822
  Receipt Date: 20131101
  Transmission Date: 20140711
  Serious: Yes (Other)
  Sender: FDA-Public Use
  Company Number: US-009507513-1207USA008040

PATIENT
  Age: 36 Year
  Sex: Female

DRUGS (10)
  1. SINEMET [Suspect]
     Indication: PARKINSON^S DISEASE
     Dosage: 2 DF, BID
     Route: 048
     Dates: start: 2007
  2. LEVOTHYROXINE SODIUM [Concomitant]
     Dosage: 50 MICROGRAM, QD
  3. PREVACID [Concomitant]
     Dosage: 2 DF, BID
  4. COGENTIN [Concomitant]
     Dosage: 1 DF, QD
  5. MIRAPEX [Suspect]
     Dosage: 1 DF, QD
  6. METFORMIN [Concomitant]
     Dosage: 850 MG, BID
  7. SIMVASTATIN [Concomitant]
     Dosage: 1 DF, QD
  8. DIOVAN [Concomitant]
     Dosage: 1 DF, QD
  9. VICODIN [Concomitant]
     Dosage: 75/750 MG
  10. LIDODERM [Concomitant]
     Dosage: UNK, PRN

REACTIONS (1)
  - Somnolence [Recovered/Resolved]
